FAERS Safety Report 8823306 (Version 1)
Quarter: 2012Q4

REPORT INFORMATION
  Report Type: 
  Country: FR (occurrence: FR)
  Receive Date: 20121003
  Receipt Date: 20121003
  Transmission Date: 20130627
  Serious: Yes (Hospitalization)
  Sender: FDA-Public Use
  Company Number: FR-ASTRAZENECA-2012SE74795

PATIENT
  Age: 933 Month
  Sex: Male

DRUGS (10)
  1. CRESTOR [Suspect]
     Route: 048
  2. ZYLORIC [Interacting]
     Route: 048
  3. ASPEGIC [Interacting]
     Route: 048
  4. PREVISCAN [Suspect]
     Route: 048
     Dates: end: 20120925
  5. PREVISCAN [Suspect]
     Route: 048
     Dates: start: 20120927
  6. LASILIX [Concomitant]
     Route: 048
  7. ALDACTONE [Concomitant]
     Route: 048
  8. TRIATEC [Concomitant]
     Route: 048
  9. DIFFU K [Concomitant]
     Route: 048
  10. CARDENSIEL [Concomitant]
     Route: 048

REACTIONS (4)
  - Drug interaction [Recovered/Resolved]
  - Accidental overdose [Recovered/Resolved]
  - Renal failure acute [Unknown]
  - International normalised ratio increased [Recovered/Resolved]
